FAERS Safety Report 5917471-1 (Version None)
Quarter: 2008Q4

REPORT INFORMATION
  Report Type: 
  Country: None (occurrence: None)
  Receive Date: 20081014
  Receipt Date: 20081013
  Transmission Date: 20090506
  Serious: Yes (Other)
  Sender: FDA-Public Use
  Company Number: US-BAYER-200812357BCC

PATIENT
  Age: 77 Year
  Sex: Female
  Weight: 82 kg

DRUGS (5)
  1. PHILLIPS' LIQUID GELS STOOL SOFTENER [Suspect]
     Indication: CONSTIPATION PROPHYLAXIS
     Route: 048
     Dates: start: 20080601, end: 20080601
  2. PHILLIPS' LIQUID GELS STOOL SOFTENER [Suspect]
     Route: 048
     Dates: start: 20080501
  3. HYDROCHLOROTHIAZIDE [Concomitant]
  4. ATENOLOL [Concomitant]
  5. BENICAR [Concomitant]

REACTIONS (4)
  - BOWEL MOVEMENT IRREGULARITY [None]
  - FAECES HARD [None]
  - HAEMATOCHEZIA [None]
  - PAINFUL DEFAECATION [None]
